FAERS Safety Report 4677324-6 (Version None)
Quarter: 2005Q2

REPORT INFORMATION
  Report Type: 
  Country: None (occurrence: None)
  Receive Date: 20050525
  Receipt Date: 20050525
  Transmission Date: 20051028
  Serious: Yes (Life-Threatening)
  Sender: FDA-Public Use
  Company Number: None

PATIENT
  Age: 49 Year
  Sex: Male
  Weight: 86.1834 kg

DRUGS (1)
  1. LIPITOR [Suspect]
     Indication: BLOOD CHOLESTEROL INCREASED
     Dosage: ONCE A DAY

REACTIONS (6)
  - ARTERIAL BYPASS OPERATION [None]
  - HEPATOMEGALY [None]
  - MUSCULAR WEAKNESS [None]
  - PHOTOSENSITIVITY REACTION [None]
  - PNEUMONIA [None]
  - TRIPLE VESSEL BYPASS GRAFT [None]
